FAERS Safety Report 4976678-0 (Version None)
Quarter: 2006Q2

REPORT INFORMATION
  Report Type: 
  Country: None (occurrence: None)
  Receive Date: 20060412
  Receipt Date: 20060405
  Transmission Date: 20061013
  Serious: Yes (Life-Threatening, Hospitalization)
  Sender: FDA-Public Use
  Company Number: S06-USA-00647-01

PATIENT
  Age: 44 Year
  Sex: Male

DRUGS (4)
  1. LEXAPRO [Suspect]
     Indication: ANXIETY
     Dosage: 10 MG QD PO
     Route: 048
     Dates: start: 20050328, end: 20050601
  2. LEXAPRO [Suspect]
     Indication: DEPRESSION
     Dosage: 10 MG QD PO
     Route: 048
     Dates: start: 20050328, end: 20050601
  3. LOPRESSOR [Concomitant]
  4. HYDROCHLOROTHIAZIDE [Concomitant]

REACTIONS (9)
  - ACUTE RESPIRATORY DISTRESS SYNDROME [None]
  - ASTHENIA [None]
  - COMA [None]
  - DIFFUSE ALVEOLAR DAMAGE [None]
  - DIZZINESS [None]
  - DRUG HYPERSENSITIVITY [None]
  - DRUG TOXICITY [None]
  - RESPIRATORY FAILURE [None]
  - VIRAL INFECTION [None]
